FAERS Safety Report 25873407 (Version 1)
Quarter: 2025Q4

REPORT INFORMATION
  Report Type: Spontaneous
  Country: US (occurrence: None)
  Receive Date: 20251001
  Receipt Date: 20251001
  Transmission Date: 20260118
  Serious: Yes (Disabling, Other)
  Sender: FDA-CTU
  Company Number: None

PATIENT
  Age: 50 Year
  Sex: Female
  Weight: 63.9 kg

DRUGS (8)
  1. TRAMADOL [Suspect]
     Active Substance: TRAMADOL
     Indication: Pain
     Dosage: OTHER QUANTITY : 2 TABLET(S);?FREQUENCY : EVERY 6 HOURS;?
     Route: 048
     Dates: start: 20080815, end: 20250908
  2. NORTRIPTYLINE [Suspect]
     Active Substance: NORTRIPTYLINE
  3. TYLENOL WITH CODEINE [Suspect]
     Active Substance: ACETAMINOPHEN\CODEINE PHOSPHATE
  4. ATENOLOL [Concomitant]
     Active Substance: ATENOLOL
  5. NORTRIPTYLINE [Concomitant]
     Active Substance: NORTRIPTYLINE
  6. ESTRADIOL [Concomitant]
     Active Substance: ESTRADIOL
  7. Tylenol 3 30/300 [Concomitant]
  8. VITAMINS [Concomitant]
     Active Substance: VITAMINS

REACTIONS (11)
  - Withdrawal syndrome [None]
  - Tinnitus [None]
  - Palpitations [None]
  - Diarrhoea [None]
  - Restless legs syndrome [None]
  - Dyspnoea [None]
  - Influenza like illness [None]
  - Ocular discomfort [None]
  - Abdominal pain upper [None]
  - Agitation [None]
  - Irritability [None]

NARRATIVE: CASE EVENT DATE: 20250908
